FAERS Safety Report 19881092 (Version 1)
Quarter: 2021Q3

REPORT INFORMATION
  Report Type: Spontaneous
  Country: CA (occurrence: CA)
  Receive Date: 20210925
  Receipt Date: 20210925
  Transmission Date: 20211014
  Serious: Yes (Hospitalization)
  Sender: FDA-Public Use
  Company Number: CA-CELLTRION INC.-2020CA034327

PATIENT

DRUGS (15)
  1. INFLECTRA [Suspect]
     Active Substance: INFLIXIMAB-DYYB
     Dosage: 700 MG EVERY 5 WEEKS
     Route: 042
     Dates: start: 20210323
  2. INFLECTRA [Suspect]
     Active Substance: INFLIXIMAB-DYYB
     Dosage: 700 MG EVERY 5 WEEKS
     Route: 042
     Dates: start: 20210428
  3. INFLECTRA [Suspect]
     Active Substance: INFLIXIMAB-DYYB
     Dosage: 700 MG EVERY 5 WEEKS
     Route: 042
     Dates: start: 20210428
  4. AZA [AZITHROMYCIN DIHYDRATE] [Concomitant]
     Dosage: 175 MG, DAILY
  5. FLAGYL [METRONIDAZOLE BENZOATE] [Concomitant]
     Active Substance: METRONIDAZOLE BENZOATE
     Dosage: UNK
  6. INFLECTRA [Suspect]
     Active Substance: INFLIXIMAB-DYYB
     Dosage: 700 MG EVERY 5 WEEKS
     Route: 042
     Dates: start: 20210915
  7. CIPRO [Concomitant]
     Active Substance: CIPROFLOXACIN HYDROCHLORIDE
     Dosage: UNK
  8. INFLECTRA [Suspect]
     Active Substance: INFLIXIMAB-DYYB
     Dosage: 700 MG EVERY 5 WEEKS
     Route: 042
     Dates: start: 20210707
  9. BENADRYL [Concomitant]
     Active Substance: DIPHENHYDRAMINE HYDROCHLORIDE
     Dosage: 25 MG, EVERY 5 WEEKS
     Dates: start: 20210915
  10. INFLECTRA [Suspect]
     Active Substance: INFLIXIMAB-DYYB
     Dosage: 700 MG EVERY 5 WEEKS
     Route: 042
     Dates: start: 20210602
  11. INFLECTRA [Suspect]
     Active Substance: INFLIXIMAB-DYYB
     Dosage: 700 MG EVERY 5 WEEKS
     Route: 042
     Dates: start: 20210323
  12. INFLECTRA [Suspect]
     Active Substance: INFLIXIMAB-DYYB
     Dosage: 700 MG EVERY 5 WEEKS
     Route: 042
     Dates: start: 20210811
  13. INFLECTRA [Suspect]
     Active Substance: INFLIXIMAB-DYYB
     Indication: CROHN^S DISEASE
     Dosage: 700 MG EVERY 5 WEEKS
     Route: 042
     Dates: start: 20210115
  14. INFLECTRA [Suspect]
     Active Substance: INFLIXIMAB-DYYB
     Dosage: 700 MG EVERY 5 WEEKS
     Route: 042
     Dates: start: 20210811
  15. HYDROCORTISONE. [Concomitant]
     Active Substance: HYDROCORTISONE
     Indication: PREMEDICATION
     Dosage: 100 MG, EVERY 5 WEEK
     Route: 042
     Dates: start: 20210811

REACTIONS (7)
  - Pruritus [Not Recovered/Not Resolved]
  - Pilonidal cyst [Unknown]
  - Off label use [Unknown]
  - Intentional product use issue [Unknown]
  - Vasculitis [Unknown]
  - Urticaria [Recovered/Resolved]
  - Rash [Not Recovered/Not Resolved]

NARRATIVE: CASE EVENT DATE: 20210316
